FAERS Safety Report 12547960 (Version 3)
Quarter: 2016Q3

REPORT INFORMATION
  Report Type: Spontaneous
  Country: US (occurrence: US)
  Receive Date: 20160712
  Receipt Date: 20160808
  Transmission Date: 20161109
  Serious: No
  Sender: FDA-Public Use
  Company Number: US-BEH-2016058362

PATIENT
  Sex: Male
  Weight: 119 kg

DRUGS (24)
  1. HIZENTRA [Suspect]
     Active Substance: HUMAN IMMUNOGLOBULIN G
     Indication: IMMUNODEFICIENCY COMMON VARIABLE
     Route: 058
     Dates: start: 20140728
  2. NASONEX [Concomitant]
     Active Substance: MOMETASONE FUROATE
  3. PRADAXA [Concomitant]
     Active Substance: DABIGATRAN ETEXILATE MESYLATE
  4. OMEGA [Concomitant]
     Active Substance: CONVALLARIA MAJALIS\CRATAEGUS LAEVIGATA LEAF\PROXYPHYLLINE
  5. GEMFIBROZIL. [Concomitant]
     Active Substance: GEMFIBROZIL
  6. MONTELUKAST [Concomitant]
     Active Substance: MONTELUKAST SODIUM
  7. EPIPEN [Concomitant]
     Active Substance: EPINEPHRINE
  8. POTASSIUM [Concomitant]
     Active Substance: POTASSIUM
  9. PROPRANOLOL [Concomitant]
     Active Substance: PROPRANOLOL\PROPRANOLOL HYDROCHLORIDE
  10. LIDOCAINE. [Concomitant]
     Active Substance: LIDOCAINE
  11. GABPENTIN [Concomitant]
  12. SINGULAIR [Concomitant]
     Active Substance: MONTELUKAST SODIUM
  13. ZOLPIDEM [Concomitant]
     Active Substance: ZOLPIDEM\ZOLPIDEM TARTRATE
  14. LANSOPRAZOLE. [Concomitant]
     Active Substance: LANSOPRAZOLE
  15. CYMBALTA [Concomitant]
     Active Substance: DULOXETINE HYDROCHLORIDE
  16. ASPIRIN. [Concomitant]
     Active Substance: ASPIRIN
  17. SULINDAC. [Concomitant]
     Active Substance: SULINDAC
  18. DULCOLAX NOS [Concomitant]
     Active Substance: BISACODYL OR DOCUSATE SODIUM
  19. GLUCOSAMINE [Concomitant]
     Active Substance: GLUCOSAMINE
  20. DIPHENHYDRAMINE. [Concomitant]
     Active Substance: DIPHENHYDRAMINE
  21. PATANOL [Concomitant]
     Active Substance: OLOPATADINE HYDROCHLORIDE
  22. CRESTOR [Concomitant]
     Active Substance: ROSUVASTATIN CALCIUM
  23. FLECTOR [Concomitant]
     Active Substance: DICLOFENAC EPOLAMINE
  24. SULINDAC. [Concomitant]
     Active Substance: SULINDAC

REACTIONS (1)
  - Sinusitis [Unknown]
